FAERS Safety Report 8852136 (Version 2)
Quarter: 2012Q4

REPORT INFORMATION
  Report Type: 
  Country: US (occurrence: US)
  Receive Date: 20121022
  Receipt Date: 20121210
  Transmission Date: 20130627
  Serious: Yes (Other)
  Sender: FDA-Public Use
  Company Number: US-PFIZER INC-2012262379

PATIENT
  Age: 53 Year
  Sex: Female
  Weight: 24 kg

DRUGS (10)
  1. ZOLOFT [Suspect]
     Indication: DEPRESSION
     Dosage: 100 mg, 1x/day
     Route: 048
  2. XANAX [Suspect]
     Indication: NEUROPATHY
     Dosage: 1 mg, 4x/day
     Route: 048
  3. XANAX [Suspect]
     Indication: ANXIETY
  4. CHANTIX [Concomitant]
     Indication: HEAVY SMOKER
     Dosage: UNK
     Dates: start: 20121019
  5. AMLODIPINE [Concomitant]
     Indication: BLOOD PRESSURE HIGH
     Dosage: 20 mg, 2x/day
  6. LISINOPRIL [Concomitant]
     Indication: BLOOD PRESSURE HIGH
     Dosage: 20 mg, 1x/day
  7. METFORMIN [Concomitant]
     Indication: DIABETES
     Dosage: UNK, 2x/day
  8. AMBIEN [Concomitant]
     Indication: SLEEP DIFFICULT
     Dosage: UNK, 1x/day
  9. LORTAB [Concomitant]
     Indication: PAIN
     Dosage: 10 mg, as needed
  10. IBUPROFEN [Concomitant]
     Dosage: UNK

REACTIONS (3)
  - Urinary tract infection [Unknown]
  - Stag horn calculus [Not Recovered/Not Resolved]
  - Renal disorder [Unknown]
